FAERS Safety Report 21044061 (Version 1)
Quarter: 2022Q3

REPORT INFORMATION
  Report Type: Spontaneous
  Country: DE (occurrence: DE)
  Receive Date: 20220705
  Receipt Date: 20220705
  Transmission Date: 20221027
  Serious: Yes (Other)
  Sender: FDA-Public Use
  Company Number: DE-NOVARTISPH-PHHY2018DE124426

PATIENT
  Age: 74 Year
  Sex: Female
  Weight: 66 kg

DRUGS (16)
  1. DEXAMETHASONE [Suspect]
     Active Substance: DEXAMETHASONE
     Indication: Plasma cell myeloma
     Dosage: 16 MG, QD (FREQUENCY TEXT: NOT PROVIDED)
     Route: 065
     Dates: start: 20180917
  2. DEXAMETHASONE [Suspect]
     Active Substance: DEXAMETHASONE
     Dosage: 16 MG
     Route: 065
     Dates: start: 20181005
  3. DEXAMETHASONE [Suspect]
     Active Substance: DEXAMETHASONE
     Dosage: 20 MG (FREQUENCY TEXT: NOT PROVIDED)
     Route: 065
     Dates: start: 20180427
  4. DEXAMETHASONE [Suspect]
     Active Substance: DEXAMETHASONE
     Dosage: 20 MG (FREQUENCY TEXT: NOT PROVIDED)
     Route: 065
     Dates: start: 20180810
  5. DEXAMETHASONE [Suspect]
     Active Substance: DEXAMETHASONE
     Dosage: 16 MG (FREQUENCY TEXT: NOT PROVIDED)
     Route: 065
     Dates: start: 20180817
  6. REVLIMID [Suspect]
     Active Substance: LENALIDOMIDE
     Indication: Plasma cell myeloma
     Dosage: 25 MG, QD (FREQUENCY TEXT: NOT PROVIDED)
     Route: 048
     Dates: start: 20180817, end: 20180906
  7. REVLIMID [Suspect]
     Active Substance: LENALIDOMIDE
     Dosage: 25 MG, QD (FREQUENCY TEXT: NOT PROVIDED)
     Route: 048
     Dates: start: 20180720, end: 20180809
  8. REVLIMID [Suspect]
     Active Substance: LENALIDOMIDE
     Dosage: 25 MG (FREQUENCY TEXT: NOT PROVIDED)
     Route: 048
     Dates: start: 20180622, end: 20180712
  9. REVLIMID [Suspect]
     Active Substance: LENALIDOMIDE
     Dosage: 20 MG (FREQUENCY TEXT: NOT PROVIDED)
     Route: 048
     Dates: start: 20180914, end: 20181004
  10. REVLIMID [Suspect]
     Active Substance: LENALIDOMIDE
     Dosage: 25 MG (FREQUENCY TEXT: NOT PROVIDED)
     Route: 048
     Dates: start: 20180525, end: 20180614
  11. REVLIMID [Suspect]
     Active Substance: LENALIDOMIDE
     Dosage: 25 MG (FREQUENCY TEXT: NOT PROVIDED)
     Route: 048
     Dates: start: 20180427, end: 20180517
  12. ASPIRIN [Concomitant]
     Active Substance: ASPIRIN
     Indication: Prophylaxis
     Dosage: 100 MG, QD
     Route: 048
     Dates: start: 20180720
  13. ZOMETA [Concomitant]
     Active Substance: ZOLEDRONIC ACID
     Indication: Prophylaxis
     Dosage: 4 MG, QMO
     Route: 042
     Dates: start: 20180524
  14. INNOHEP [Concomitant]
     Active Substance: TINZAPARIN SODIUM
     Indication: Prophylaxis
     Dosage: 35 ML, QD
     Route: 058
     Dates: start: 20180427, end: 20180719
  15. UNSPECIFIED INGREDIENT [Concomitant]
     Active Substance: UNSPECIFIED INGREDIENT
     Indication: Prophylaxis
     Dosage: 999
     Route: 048
     Dates: start: 20180427
  16. ASPIRIN [Concomitant]
     Active Substance: ASPIRIN
     Indication: Prophylaxis
     Dosage: 100 MG
     Route: 048
     Dates: start: 20180720

REACTIONS (5)
  - Neutropenia [Unknown]
  - Polyneuropathy [Not Recovered/Not Resolved]
  - Paraesthesia [Unknown]
  - Dyspepsia [Unknown]
  - Constipation [Unknown]

NARRATIVE: CASE EVENT DATE: 20180813
